FAERS Safety Report 21167166 (Version 1)
Quarter: 2022Q3

REPORT INFORMATION
  Report Type: Report from Study
  Country: US (occurrence: US)
  Receive Date: 20220803
  Receipt Date: 20220803
  Transmission Date: 20221027
  Serious: Yes (Death, Other)
  Sender: FDA-Public Use
  Company Number: US-GILEAD-2022-0592143

PATIENT
  Age: 76 Year
  Sex: Male

DRUGS (1)
  1. AZTREONAM LYSINE [Suspect]
     Active Substance: AZTREONAM LYSINE
     Indication: Bronchiectasis
     Dosage: 75MG/VL  3 TIMES A DAY FOR 7  DAYS ON AND 21 DAYS OFF
     Route: 055
     Dates: start: 20220215

REACTIONS (2)
  - Death [Fatal]
  - Off label use [Unknown]
